FAERS Safety Report 24551056 (Version 1)
Quarter: 2024Q4

REPORT INFORMATION
  Report Type: Spontaneous
  Country: CA (occurrence: CA)
  Receive Date: 20241025
  Receipt Date: 20241025
  Transmission Date: 20250115
  Serious: Yes (Other)
  Sender: TEVA
  Company Number: CA-TEVA-VS-3256256

PATIENT
  Age: 45 Year
  Sex: Male
  Weight: 86 kg

DRUGS (1)
  1. DESVENLAFAXINE [Suspect]
     Active Substance: DESVENLAFAXINE
     Indication: Anxiety
     Dosage: DOSAGE FORM:TABLET (EXTENDED-RELEASE)
     Route: 048

REACTIONS (2)
  - Depression [Not Recovered/Not Resolved]
  - Product substitution issue [Not Recovered/Not Resolved]
